FAERS Safety Report 9953528 (Version 1)
Quarter: 2014Q1

REPORT INFORMATION
  Report Type: Spontaneous
  Country: US (occurrence: US)
  Receive Date: 20140304
  Receipt Date: 20140304
  Transmission Date: 20141002
  Serious: Yes (Other)
  Sender: FDA-Public Use
  Company Number: US-TEVA-466401USA

PATIENT
  Age: 22 Year
  Sex: Female
  Weight: 62.2 kg

DRUGS (5)
  1. PARAGARD 380A [Suspect]
     Indication: CONTRACEPTION
     Route: 015
     Dates: start: 20140131, end: 20140228
  2. PARAGARD 380A [Suspect]
     Route: 015
     Dates: start: 20140228
  3. PRENATAL VITAMINS [Concomitant]
     Indication: POSTPARTUM STATE
  4. ZYRTEC [Concomitant]
     Indication: HYPERSENSITIVITY
  5. FENUGREEK [Concomitant]
     Indication: LACTATION DISORDER

REACTIONS (1)
  - Device dislocation [Recovered/Resolved]
